FAERS Safety Report 6315078-8 (Version None)
Quarter: 2009Q3

REPORT INFORMATION
  Report Type: 
  Country: None (occurrence: None)
  Receive Date: 20090818
  Receipt Date: 20090818
  Transmission Date: 20100115
  Serious: Yes (Hospitalization)
  Sender: FDA-Public Use
  Company Number: None

PATIENT
  Age: 30 Year
  Sex: Female
  Weight: 83.9154 kg

DRUGS (2)
  1. MIRENA [Suspect]
     Indication: CONTRACEPTION
     Dosage: INTRA-UTERINE
     Route: 015
     Dates: start: 20090206, end: 20090817
  2. MIRENA [Suspect]
     Indication: MENORRHAGIA
     Dosage: INTRA-UTERINE
     Route: 015
     Dates: start: 20090206, end: 20090817

REACTIONS (4)
  - FALL [None]
  - GRAND MAL CONVULSION [None]
  - JOINT DISLOCATION [None]
  - UPPER LIMB FRACTURE [None]
